FAERS Safety Report 9297977 (Version 1)
Quarter: 2013Q2

REPORT INFORMATION
  Report Type: Spontaneous
  Country: FR (occurrence: FR)
  Receive Date: 20130520
  Receipt Date: 20130520
  Transmission Date: 20140414
  Serious: Yes (Hospitalization)
  Sender: FDA-Public Use
  Company Number: FR-BAYER-2013-061095

PATIENT
  Age: 42 Year
  Sex: Male

DRUGS (4)
  1. IZILOX [Suspect]
     Indication: PULMONARY TUBERCULOSIS
     Dosage: DAILY DOSE 800 MG
     Route: 048
     Dates: start: 20120629
  2. PASER [Suspect]
     Dosage: 4 G, TID
     Route: 048
     Dates: start: 20120404
  3. DEXAMBUTOL [Suspect]
     Dosage: DAILY DOSE 375 MG
     Route: 048
     Dates: start: 20120629, end: 20130327
  4. PIRILENE [Suspect]
     Dosage: DAILY DOSE 2 DF
     Route: 048
     Dates: start: 20120404

REACTIONS (1)
  - Optic neuritis [Recovered/Resolved]
